FAERS Safety Report 16297876 (Version 6)
Quarter: 2020Q1

REPORT INFORMATION
  Report Type: Report from Study
  Country: JP (occurrence: JP)
  Receive Date: 20190510
  Receipt Date: 20200117
  Transmission Date: 20200409
  Serious: Yes (Hospitalization)
  Sender: FDA-Public Use
  Company Number: JP-ROCHE-2313908

PATIENT
  Age: 54 Year
  Sex: Female
  Weight: 53 kg

DRUGS (8)
  1. CARBOPLATIN. [Suspect]
     Active Substance: CARBOPLATIN
     Indication: LUNG ADENOCARCINOMA
     Dosage: DOSE: AUC5
     Route: 041
     Dates: start: 20190418, end: 20190418
  2. CALFINA [ALFACALCIDOL] [Concomitant]
     Active Substance: ALFACALCIDOL
     Indication: METASTASES TO BONE
     Dosage: BEGINNING OF DOSAGE: TRIAL PREINITIATION
     Route: 048
  3. ASPARA-CA [Concomitant]
     Active Substance: CALCIUM ASPARTATE
     Indication: METASTASES TO BONE
     Dosage: BEGINNING OF DOSAGE: TRIAL PREINITIATION
     Route: 048
  4. RANMARK [Concomitant]
     Active Substance: DENOSUMAB
     Indication: METASTASES TO BONE
     Dosage: BEGINNING OF DOSAGE: TRIAL PREINITIATION
     Route: 058
  5. PEMETREXED DISODIUM HEPTAHYDRATE [Suspect]
     Active Substance: PEMETREXED
     Indication: LUNG ADENOCARCINOMA
     Route: 041
     Dates: start: 20190418, end: 20190418
  6. FRESMIN [Concomitant]
     Active Substance: HYDROXOCOBALAMIN
     Indication: PREMEDICATION
     Route: 030
     Dates: start: 20190412
  7. ATEZOLIZUMAB. [Suspect]
     Active Substance: ATEZOLIZUMAB
     Indication: LUNG ADENOCARCINOMA
     Route: 041
     Dates: start: 20190418, end: 20190418
  8. BEVACIZUMAB. [Suspect]
     Active Substance: BEVACIZUMAB
     Indication: LUNG ADENOCARCINOMA
     Route: 041
     Dates: start: 20190418, end: 20190418

REACTIONS (1)
  - Pneumonitis [Recovered/Resolved]

NARRATIVE: CASE EVENT DATE: 20190428
